FAERS Safety Report 5040029-6 (Version None)
Quarter: 2006Q2

REPORT INFORMATION
  Report Type: 
  Country: None (occurrence: None)
  Receive Date: 20060601
  Receipt Date: 20060105
  Transmission Date: 20061013
  Serious: No
  Sender: FDA-Public Use
  Company Number: 2006PV006654

PATIENT
  Age: 62 Year
  Sex: Female
  Weight: 146.5118 kg

DRUGS (5)
  1. BYETTA [Suspect]
     Indication: DIABETES MELLITUS NON-INSULIN-DEPENDENT
     Dosage: 10 + 5 MCG/BID; SC
     Route: 058
     Dates: start: 20051017, end: 20050101
  2. BYETTA [Suspect]
     Indication: DIABETES MELLITUS NON-INSULIN-DEPENDENT
     Dosage: 10 + 5 MCG/BID; SC
     Route: 058
     Dates: start: 20050101
  3. AMARYL [Concomitant]
  4. METFORMIN [Concomitant]
  5. AVALIDE [Concomitant]

REACTIONS (5)
  - BLOOD GLUCOSE INCREASED [None]
  - DECREASED APPETITE [None]
  - PALPITATIONS [None]
  - STRESS [None]
  - WEIGHT DECREASED [None]
